FAERS Safety Report 7864482-5 (Version None)
Quarter: 2011Q4

REPORT INFORMATION
  Report Type: 
  Country: None (occurrence: None)
  Receive Date: 20111025
  Receipt Date: 20111018
  Transmission Date: 20120403
  Serious: Yes (Disabling, Other)
  Sender: FDA-Public Use
  Company Number: 2011SP047947

PATIENT
  Age: 29 Year
  Sex: Female
  Weight: 58 kg

DRUGS (2)
  1. NUVARING [Suspect]
     Indication: CONTRACEPTION
     Dosage: QM;VAG
     Route: 067
     Dates: start: 20100501
  2. NUVARING [Suspect]
     Indication: DYSMENORRHOEA
     Dosage: QM;VAG
     Route: 067
     Dates: start: 20100501

REACTIONS (4)
  - GASTROINTESTINAL PAIN [None]
  - DEVICE MISUSE [None]
  - ENDOMETRIOSIS [None]
  - INAPPROPRIATE SCHEDULE OF DRUG ADMINISTRATION [None]
